FAERS Safety Report 5989151-8 (Version None)
Quarter: 2008Q4

REPORT INFORMATION
  Report Type: 
  Country: None (occurrence: None)
  Receive Date: 20081210
  Receipt Date: 20081107
  Transmission Date: 20090506
  Serious: Yes (Death, Other)
  Sender: FDA-Public Use
  Company Number: PHHY2008GB30702

PATIENT
  Sex: Male

DRUGS (3)
  1. IMATINIB MESYLATE [Suspect]
     Dosage: 400 MG, ONCE/SINGLE
     Dates: start: 20041001, end: 20050101
  2. IMATINIB MESYLATE [Suspect]
     Dosage: 800 MG, ONCE/SINGLE
     Dates: start: 20050101, end: 20060601
  3. SUNITINIB [Concomitant]
     Dosage: 37.5 MG
     Dates: start: 20060601, end: 20070101

REACTIONS (3)
  - DISEASE PROGRESSION [None]
  - GASTROINTESTINAL STROMAL TUMOUR [None]
  - SUDDEN DEATH [None]
